FAERS Safety Report 5730445-9 (Version None)
Quarter: 2008Q2

REPORT INFORMATION
  Report Type: 
  Country: None (occurrence: None)
  Receive Date: 20080507
  Receipt Date: 20080429
  Transmission Date: 20081010
  Serious: Yes (Hospitalization, Other)
  Sender: FDA-Public Use
  Company Number: GB-ASTRAZENECA-2008GB00805

PATIENT
  Age: 62 Year
  Sex: Male
  Weight: 52 kg

DRUGS (4)
  1. QUETIAPINE FUMARATE [Suspect]
     Indication: BIPOLAR DISORDER
     Dosage: 200 MG
     Route: 048
     Dates: start: 20050301, end: 20061101
  2. DEPAKOTE [Suspect]
     Indication: BIPOLAR DISORDER
     Route: 048
     Dates: start: 20050301, end: 20061101
  3. HUMAN ACTRAPID [Concomitant]
     Indication: DIABETES MELLITUS
     Dosage: 30 IU
     Route: 058
  4. REBOXETINE [Concomitant]
     Indication: DEPRESSION
     Route: 048
     Dates: start: 20061001, end: 20061101

REACTIONS (3)
  - HAEMOGLOBIN ABNORMAL [None]
  - NEUTROPHIL COUNT ABNORMAL [None]
  - RED BLOOD CELL COUNT ABNORMAL [None]
